FAERS Safety Report 7171324-2 (Version None)
Quarter: 2010Q4

REPORT INFORMATION
  Report Type: 
  Country: None (occurrence: None)
  Receive Date: 20101217
  Receipt Date: 20101207
  Transmission Date: 20110411
  Serious: Yes (Other)
  Sender: FDA-Public Use
  Company Number: US-GENZYME-FABR-1001698

PATIENT
  Sex: Male
  Weight: 95 kg

DRUGS (3)
  1. FABRAZYME [Suspect]
     Indication: FABRY'S DISEASE
     Dosage: UNK
  2. FABRAZYME [Suspect]
     Dosage: UNK
     Route: 042
     Dates: start: 20040120, end: 20050525
  3. FABRAZYME [Suspect]
     Dosage: 95 MG, Q2W
     Route: 042
     Dates: start: 20050707

REACTIONS (2)
  - GASTROINTESTINAL DISORDER [None]
  - RENAL IMPAIRMENT [None]
